FAERS Safety Report 16761981 (Version 2)
Quarter: 2019Q3

REPORT INFORMATION
  Report Type: Report from Study
  Country: US (occurrence: US)
  Receive Date: 20190830
  Receipt Date: 20190912
  Transmission Date: 20191005
  Serious: Yes (Hospitalization, Other)
  Sender: FDA-Public Use
  Company Number: US-BIOGEN-2019BI00778308

PATIENT
  Age: 46 Year
  Sex: Female

DRUGS (2)
  1. TECFIDERA [Suspect]
     Active Substance: DIMETHYL FUMARATE
     Route: 065
     Dates: start: 20190321
  2. TECFIDERA [Suspect]
     Active Substance: DIMETHYL FUMARATE
     Indication: MULTIPLE SCLEROSIS
     Dosage: MAINTENANCE DOSE
     Route: 048
     Dates: start: 20130327, end: 20181120

REACTIONS (13)
  - Cerebrovascular accident [Recovered/Resolved]
  - Alopecia [Not Recovered/Not Resolved]
  - Prescribed underdose [Unknown]
  - Memory impairment [Not Recovered/Not Resolved]
  - Ascites [Unknown]
  - Speech disorder [Not Recovered/Not Resolved]
  - Ovarian cancer [Unknown]
  - Multiple sclerosis relapse [Recovered/Resolved]
  - Vision blurred [Not Recovered/Not Resolved]
  - Nephrolithiasis [Unknown]
  - Product dose omission [Unknown]
  - Tremor [Not Recovered/Not Resolved]
  - Pyrexia [Recovered/Resolved]

NARRATIVE: CASE EVENT DATE: 201903
